FAERS Safety Report 6028910-2 (Version None)
Quarter: 2009Q1

REPORT INFORMATION
  Report Type: 
  Country: None (occurrence: None)
  Receive Date: 20090102
  Receipt Date: 20081223
  Transmission Date: 20090719
  Serious: Yes (Death)
  Sender: FDA-Public Use
  Company Number: 1-17152289

PATIENT
  Age: 30 Year
  Sex: Male

DRUGS (1)
  1. CIPROFLOXACIN HCL [Suspect]
     Indication: URINARY TRACT INFECTION
     Dosage: 1 G DAILY, ORAL
     Route: 048

REACTIONS (14)
  - ABDOMINAL PAIN [None]
  - CARDIAC FAILURE ACUTE [None]
  - COLD SWEAT [None]
  - CONFUSIONAL STATE [None]
  - DEHYDRATION [None]
  - HAEMOLYSIS [None]
  - JAUNDICE [None]
  - MYOCARDIAL HAEMORRHAGE [None]
  - PETECHIAE [None]
  - PULMONARY OEDEMA [None]
  - PYELONEPHRITIS [None]
  - PYREXIA [None]
  - THROMBOTIC THROMBOCYTOPENIC PURPURA [None]
  - VOMITING [None]
